FAERS Safety Report 9263164 (Version 2)
Quarter: 2013Q3

REPORT INFORMATION
  Report Type: Spontaneous
  Country: US (occurrence: US)
  Receive Date: 20130430
  Receipt Date: 20130927
  Transmission Date: 20140515
  Serious: Yes (Hospitalization, Other)
  Sender: FDA-Public Use
  Company Number: US-ASTRAZENECA-2013SE27881

PATIENT
  Age: 72 Year
  Sex: Female
  Weight: 88 kg

DRUGS (6)
  1. BRILINTA [Suspect]
     Indication: CORONARY ARTERIAL STENT INSERTION
     Route: 048
     Dates: start: 20130212
  2. ASPIRIN [Suspect]
     Dosage: DAILY
     Route: 065
     Dates: end: 201303
  3. ASPIRIN [Suspect]
     Route: 048
  4. FAMOTIDINE [Concomitant]
  5. CARAFATE [Concomitant]
     Dosage: 2 TEASPOONS, ONCE DAILY
  6. 15 UNSPECIFIED MEDICATIONS [Concomitant]

REACTIONS (3)
  - Anaemia [Recovered/Resolved]
  - Gastric disorder [Not Recovered/Not Resolved]
  - Circumstance or information capable of leading to medication error [Unknown]
